FAERS Safety Report 16405417 (Version 2)
Quarter: 2019Q2

REPORT INFORMATION
  Report Type: Spontaneous
  Country: US (occurrence: US)
  Receive Date: 20190607
  Receipt Date: 20190621
  Transmission Date: 20190711
  Serious: Yes (Other)
  Sender: FDA-Public Use
  Company Number: US-BAYER-2019-107888

PATIENT
  Age: 66 Year
  Sex: Male

DRUGS (2)
  1. NEXAVAR [Suspect]
     Active Substance: SORAFENIB
     Dosage: REDUCED DOSE
     Dates: start: 2019, end: 20190605
  2. NEXAVAR [Suspect]
     Active Substance: SORAFENIB
     Dosage: UNK
     Dates: start: 20190523, end: 2019

REACTIONS (8)
  - Impaired healing [None]
  - Pruritus generalised [None]
  - Fatigue [None]
  - Rash [None]
  - Pruritus [None]
  - Nausea [None]
  - Diarrhoea [None]
  - Feeling abnormal [None]

NARRATIVE: CASE EVENT DATE: 20190530
